FAERS Safety Report 14675361 (Version 1)
Quarter: 2018Q1

REPORT INFORMATION
  Report Type: Report from Study
  Country: FR (occurrence: FR)
  Receive Date: 20180323
  Receipt Date: 20180323
  Transmission Date: 20180509
  Serious: Yes (Hospitalization)
  Sender: FDA-Public Use
  Company Number: FR-ASTRAZENECA-2018SE35288

PATIENT
  Age: 22290 Day
  Sex: Female

DRUGS (5)
  1. OLAPARIB. [Suspect]
     Active Substance: OLAPARIB
     Indication: OVARIAN CANCER
     Route: 048
     Dates: start: 20161129, end: 20170717
  2. SOLU-MEDROL [Concomitant]
     Active Substance: METHYLPREDNISOLONE SODIUM SUCCINATE
     Route: 065
  3. TAZOCILLINE [Concomitant]
     Active Substance: PIPERACILLIN SODIUM\TAZOBACTAM SODIUM
     Route: 065
  4. BEVACIZUMAB. [Suspect]
     Active Substance: BEVACIZUMAB
     Indication: OVARIAN CANCER
     Dosage: 15 MG/KG, DAY1, EVERY 3 WEEKS, FOR A TOTAL DURATION OF 15 MONTHS / 22 CYCLES
     Route: 042
     Dates: start: 20161129, end: 20180109
  5. SKENAN [Concomitant]
     Active Substance: MORPHINE SULFATE
     Route: 065

REACTIONS (1)
  - Acute leukaemia [Not Recovered/Not Resolved]

NARRATIVE: CASE EVENT DATE: 20180311
